FAERS Safety Report 17998224 (Version 1)
Quarter: 2020Q3

REPORT INFORMATION
  Report Type: Spontaneous
  Country: US (occurrence: US)
  Receive Date: 20200708
  Receipt Date: 20200708
  Transmission Date: 20201103
  Serious: No
  Sender: FDA-Public Use
  Company Number: US-009507513-2006USA010840

PATIENT
  Age: 19 Year
  Sex: Female
  Weight: 90.7 kg

DRUGS (3)
  1. NEXPLANON [Suspect]
     Active Substance: ETONOGESTREL
     Indication: CONTRACEPTION
     Dosage: UNK, ROUTE OF ADMINISTRATION: LEFT/IMPLANT, EVERY 3 YEARS
     Dates: start: 20190311
  2. IBUPROFEN. [Concomitant]
     Active Substance: IBUPROFEN
  3. ONDANSETRON [Concomitant]
     Active Substance: ONDANSETRON
     Dosage: UNK

REACTIONS (11)
  - Ovarian cyst [Not Recovered/Not Resolved]
  - Menometrorrhagia [Not Recovered/Not Resolved]
  - Gait inability [Not Recovered/Not Resolved]
  - Genital swelling [Not Recovered/Not Resolved]
  - Nausea [Not Recovered/Not Resolved]
  - Genital pain [Not Recovered/Not Resolved]
  - Asthenia [Not Recovered/Not Resolved]
  - Menometrorrhagia [Not Recovered/Not Resolved]
  - Vaginal infection [Not Recovered/Not Resolved]
  - Implant site pain [Not Recovered/Not Resolved]
  - Abdominal pain [Not Recovered/Not Resolved]

NARRATIVE: CASE EVENT DATE: 20190311
